FAERS Safety Report 9431934 (Version 1)
Quarter: 2013Q3

REPORT INFORMATION
  Report Type: Report from Study
  Country: NL (occurrence: NL)
  Receive Date: 20130731
  Receipt Date: 20130731
  Transmission Date: 20140515
  Serious: Yes (Hospitalization)
  Sender: FDA-Public Use
  Company Number: NL-BRISTOL-MYERS SQUIBB COMPANY-15419815

PATIENT
  Age: 60 Year
  Sex: Female

DRUGS (7)
  1. SAXAGLIPTIN [Suspect]
     Indication: TYPE 2 DIABETES MELLITUS
     Dates: start: 20100831
  2. METFORMIN HCL [Suspect]
     Indication: TYPE 2 DIABETES MELLITUS
  3. LANTUS [Suspect]
     Indication: TYPE 2 DIABETES MELLITUS
  4. PIOGLITAZONE HCL [Suspect]
     Indication: TYPE 2 DIABETES MELLITUS
  5. BROXIL [Suspect]
     Dates: start: 20101018, end: 20101018
  6. TRAMADOL [Concomitant]
     Dates: start: 20101012, end: 20101108
  7. EPIPEN [Concomitant]
     Dosage: 1DF=1 UNIT
     Dates: start: 20101018, end: 20101018

REACTIONS (1)
  - Anaphylactic shock [Recovered/Resolved]
